FAERS Safety Report 7021491-6 (Version None)
Quarter: 2010Q3

REPORT INFORMATION
  Report Type: 
  Country: None (occurrence: None)
  Receive Date: 20100928
  Receipt Date: 20100826
  Transmission Date: 20110219
  Serious: Yes (Death)
  Sender: FDA-Public Use
  Company Number: 20109295

PATIENT
  Sex: Female

DRUGS (1)
  1. LIORESAL [Suspect]
     Indication: MUSCLE SPASTICITY
     Dosage: 405 MCG, DAILY, INTRATHECAL
     Route: 037

REACTIONS (1)
  - WRONG TECHNIQUE IN DRUG USAGE PROCESS [None]
